FAERS Safety Report 9013788 (Version 2)
Quarter: 2013Q1

REPORT INFORMATION
  Report Type: Spontaneous
  Country: US (occurrence: US)
  Receive Date: 20130115
  Receipt Date: 20130208
  Transmission Date: 20140127
  Serious: Yes (Hospitalization)
  Sender: FDA-Public Use
  Company Number: PHEH2013US001132

PATIENT
  Age: 7 Year
  Sex: Female
  Weight: 24.6 kg

DRUGS (2)
  1. EXJADE [Suspect]
     Indication: IRON OVERLOAD
     Dosage: 500 MG, QD
     Route: 048
     Dates: start: 20120525
  2. AMOXICILLIN [Concomitant]
     Indication: PROPHYLAXIS
     Dosage: 250 MG, BID
     Route: 048

REACTIONS (4)
  - Nephrolithiasis [Recovering/Resolving]
  - Haematuria [Unknown]
  - Ureteric dilatation [Unknown]
  - Hydronephrosis [Unknown]
